FAERS Safety Report 4376427-3 (Version None)
Quarter: 2004Q2

REPORT INFORMATION
  Report Type: 
  Country: None (occurrence: None)
  Receive Date: 20040610
  Receipt Date: 20040610
  Transmission Date: 20050107
  Serious: No
  Sender: FDA-Public Use
  Company Number: None

PATIENT
  Age: 23 Year
  Sex: Female
  Weight: 67.1324 kg

DRUGS (2)
  1. LUPRON [Suspect]
     Indication: ENDOMETRIOSIS
     Dosage: ARM INJECT MONTHLY
     Dates: start: 20010910, end: 20011110
  2. LUPRON [Suspect]
     Indication: UTERINE LEIOMYOMA
     Dosage: ARM INJECT MONTHLY
     Dates: start: 20010910, end: 20011110

REACTIONS (17)
  - ABDOMINAL PAIN [None]
  - ACNE [None]
  - AMNESIA [None]
  - ARTHRALGIA [None]
  - BONE PAIN [None]
  - DEPRESSION [None]
  - DYSPNOEA [None]
  - FATIGUE [None]
  - HOT FLUSH [None]
  - HYPOAESTHESIA [None]
  - INJECTION SITE PAIN [None]
  - METRORRHAGIA [None]
  - MOOD SWINGS [None]
  - NIGHT SWEATS [None]
  - VISUAL DISTURBANCE [None]
  - VULVOVAGINAL DISCOMFORT [None]
  - WEIGHT DECREASED [None]
